FAERS Safety Report 5664661-1 (Version None)
Quarter: 2008Q1

REPORT INFORMATION
  Report Type: 
  Country: None (occurrence: None)
  Receive Date: 20080314
  Receipt Date: 20080305
  Transmission Date: 20080703
  Serious: Yes (Hospitalization)
  Sender: FDA-Public Use
  Company Number: JP-ROCHE-491734

PATIENT
  Age: 5 Year
  Sex: Male
  Weight: 20 kg

DRUGS (8)
  1. TAMIFLU [Suspect]
     Dosage: DOSE FORM: DRY SYRUP. TAMIFLU WAS ADMINISTERED ONLY ONCE.
     Route: 048
     Dates: start: 20070330, end: 20070330
  2. PULSMARIN A [Concomitant]
     Route: 048
     Dates: start: 20070330, end: 20070330
  3. ASVERIN [Concomitant]
     Route: 048
     Dates: start: 20070330, end: 20070402
  4. LEFTOSE [Concomitant]
     Dosage: GENERIC NAME REPORTED AS LYSOZYME HYDROCHLORIDE.
     Route: 048
     Dates: start: 20070330, end: 20070330
  5. COCARL [Concomitant]
     Route: 048
     Dates: start: 20070330, end: 20070330
  6. BISOLVON [Concomitant]
     Route: 048
     Dates: start: 20070330, end: 20070330
  7. MUCODYNE [Concomitant]
     Route: 048
     Dates: start: 20070330, end: 20070402
  8. ANHIBA [Concomitant]
     Route: 054
     Dates: start: 20070330, end: 20070330

REACTIONS (2)
  - DELIRIUM [None]
  - HALLUCINATION [None]
